FAERS Safety Report 22188784 (Version 2)
Quarter: 2023Q2

REPORT INFORMATION
  Report Type: Spontaneous
  Country: US (occurrence: None)
  Receive Date: 20230409
  Receipt Date: 20230418
  Transmission Date: 20230722
  Serious: Yes (Hospitalization)
  Sender: FDA-Public Use
  Company Number: 2023A073931

PATIENT
  Sex: Female
  Weight: 81.6 kg

DRUGS (13)
  1. BRILINTA [Suspect]
     Active Substance: TICAGRELOR
     Indication: Myocardial infarction
     Route: 048
     Dates: start: 20230221
  2. BRILINTA [Suspect]
     Active Substance: TICAGRELOR
     Indication: Stent placement
     Route: 048
     Dates: start: 20230221
  3. ASPIRIN [Concomitant]
     Active Substance: ASPIRIN
     Dosage: 1 TABLET
     Route: 048
     Dates: start: 20230309
  4. VITAMIN D [Concomitant]
     Active Substance: VITAMIN D NOS
     Dosage: 1 TABLET
     Route: 048
     Dates: start: 20230309
  5. FISH OIL [Concomitant]
     Active Substance: FISH OIL
     Dosage: 1 TABLET
     Route: 048
     Dates: start: 20230309
  6. FLUTICASONE PROPIONATE [Concomitant]
     Active Substance: FLUTICASONE PROPIONATE
     Dosage: 50 MCG/ACTUATION
     Dates: start: 20230309
  7. CETIRIZINE HYDROCHLORIDE [Concomitant]
     Active Substance: CETIRIZINE HYDROCHLORIDE
     Dosage: 1 TABLET
     Route: 048
     Dates: start: 20230309
  8. MELOXICAM [Concomitant]
     Active Substance: MELOXICAM
     Dosage: 1 TABLET
     Route: 048
     Dates: start: 20230309
  9. CYANOCOBALAMIN [Concomitant]
     Active Substance: CYANOCOBALAMIN
     Dosage: 1 TABLET 1000UG/ML DAILY
     Dates: start: 20230309
  10. LEVOTHYROXINE SODIUM [Concomitant]
     Active Substance: LEVOTHYROXINE SODIUM
     Route: 048
     Dates: start: 20230309
  11. PRAVASTATIN SODIUM [Concomitant]
     Active Substance: PRAVASTATIN SODIUM
     Dosage: 1 TABLET
     Route: 048
     Dates: start: 20230309
  12. CARVEDILOL [Concomitant]
     Active Substance: CARVEDILOL
     Route: 048
     Dates: start: 20230309
  13. ISOSORBIDE MONONITRATE [Concomitant]
     Active Substance: ISOSORBIDE MONONITRATE
     Route: 048
     Dates: start: 20230309

REACTIONS (3)
  - Blood pressure increased [Unknown]
  - Angina pectoris [Unknown]
  - Carotid bruit [Unknown]
